FAERS Safety Report 8056319-9 (Version None)
Quarter: 2012Q1

REPORT INFORMATION
  Report Type: 
  Country: None (occurrence: None)
  Receive Date: 20120119
  Receipt Date: 20110203
  Transmission Date: 20120608
  Serious: Yes (Hospitalization)
  Sender: FDA-Public Use
  Company Number: US-SANOFI-AVENTIS-2011SA009269

PATIENT
  Age: 90 Year
  Sex: Male
  Weight: 84 kg

DRUGS (12)
  1. LASIX [Suspect]
     Route: 065
  2. KLONOPIN [Concomitant]
     Route: 065
  3. INVESTIGATIONAL DRUG [Concomitant]
     Route: 048
     Dates: end: 20110202
  4. COLACE [Concomitant]
     Route: 065
  5. INVESTIGATIONAL DRUG [Concomitant]
     Route: 048
  6. QUINAPRIL [Concomitant]
     Route: 065
  7. ATARAX [Concomitant]
     Route: 065
  8. CALCIUM WITH VITAMIN D [Concomitant]
     Route: 065
  9. ACIPHEX [Concomitant]
     Route: 065
  10. ATENOLOL [Suspect]
     Route: 065
  11. COUMADIN [Concomitant]
     Route: 065
  12. LOPID [Concomitant]
     Route: 065

REACTIONS (2)
  - HYPOTENSION [None]
  - RENAL FAILURE ACUTE [None]
